FAERS Safety Report 4392179-5 (Version None)
Quarter: 2004Q3

REPORT INFORMATION
  Report Type: 
  Country: None (occurrence: None)
  Receive Date: 20040702
  Receipt Date: 20040212
  Transmission Date: 20050211
  Serious: Yes (Other)
  Sender: FDA-Public Use
  Company Number: 2004UW02538

PATIENT
  Age: 56 Year
  Sex: Female
  Weight: 97.5234 kg

DRUGS (7)
  1. CRESTOR [Suspect]
     Indication: BLOOD CHOLESTEROL
     Dosage: 10 MG QD PO
     Route: 048
  2. AMARYL [Concomitant]
  3. ASPIRIN [Concomitant]
  4. GLUCOPHAGE [Concomitant]
  5. LASIX [Concomitant]
  6. ACCUPRIL [Concomitant]
  7. INSULIN [Concomitant]

REACTIONS (1)
  - EYE IRRITATION [None]
